FAERS Safety Report 13132941 (Version 3)
Quarter: 2017Q1

REPORT INFORMATION
  Report Type: Spontaneous
  Country: FI (occurrence: FI)
  Receive Date: 20170120
  Receipt Date: 20170310
  Transmission Date: 20170428
  Serious: Yes (Other)
  Sender: FDA-Public Use
  Company Number: FI-ROCHE-1882282

PATIENT
  Age: 69 Year
  Sex: Female

DRUGS (5)
  1. ATACAND [Concomitant]
     Active Substance: CANDESARTAN CILEXETIL
     Indication: PRODUCT USED FOR UNKNOWN INDICATION
     Dosage: 1, 5 DF, QD
     Route: 065
  2. EYLEA [Concomitant]
     Active Substance: AFLIBERCEPT
  3. MAREVAN [Concomitant]
     Active Substance: WARFARIN SODIUM
     Indication: PRODUCT USED FOR UNKNOWN INDICATION
     Route: 065
  4. LUCENTIS [Suspect]
     Active Substance: RANIBIZUMAB
     Indication: AGE-RELATED MACULAR DEGENERATION
     Route: 065
     Dates: end: 201611
  5. EMCONCOR [Concomitant]
     Active Substance: BISOPROLOL FUMARATE
     Indication: BLOOD PRESSURE MEASUREMENT
     Dosage: 0.5 DF, QD
     Route: 065

REACTIONS (7)
  - Peripheral swelling [Recovered/Resolved]
  - Eye swelling [Recovered/Resolved]
  - Pain in extremity [Recovered/Resolved]
  - Erysipelas [Recovered/Resolved]
  - Photopsia [Recovering/Resolving]
  - Burning sensation [Recovering/Resolving]
  - Headache [Recovered/Resolved]

NARRATIVE: CASE EVENT DATE: 201610
